FAERS Safety Report 20170811 (Version 2)
Quarter: 2021Q4

REPORT INFORMATION
  Report Type: Report from Study
  Country: JP (occurrence: JP)
  Receive Date: 20211210
  Receipt Date: 20211214
  Transmission Date: 20220303
  Serious: Yes (Other)
  Sender: FDA-Public Use
  Company Number: JP-CHUGAI-A2020050547

PATIENT
  Age: 50 Year
  Sex: Female
  Weight: 69.2 kg

DRUGS (65)
  1. BEVACIZUMAB [Suspect]
     Active Substance: BEVACIZUMAB
     Indication: Rectal cancer
     Dosage: 519MG,ONCE IN1DAY
     Route: 041
     Dates: start: 20201005, end: 20201005
  2. BEVACIZUMAB [Suspect]
     Active Substance: BEVACIZUMAB
     Dosage: 519MG,1 TIMES IN
     Route: 041
     Dates: start: 20201030, end: 20201120
  3. BEVACIZUMAB [Suspect]
     Active Substance: BEVACIZUMAB
     Dosage: 519MG,ONCE IN1DAY
     Route: 041
     Dates: start: 20201210, end: 20201210
  4. BEVACIZUMAB [Suspect]
     Active Substance: BEVACIZUMAB
     Dosage: UNK, QD
     Route: 041
     Dates: start: 20210104, end: 20210104
  5. BEVACIZUMAB [Suspect]
     Active Substance: BEVACIZUMAB
     Dosage: 519MG,ONCE IN1DAY
     Route: 041
     Dates: start: 20210126, end: 20210126
  6. BEVACIZUMAB [Suspect]
     Active Substance: BEVACIZUMAB
     Dosage: 300 UNK
     Route: 041
     Dates: start: 20210225, end: 20210408
  7. BEVACIZUMAB [Suspect]
     Active Substance: BEVACIZUMAB
     Dosage: 300 UNK
     Route: 041
     Dates: start: 20210422, end: 20210506
  8. BEVACIZUMAB [Suspect]
     Active Substance: BEVACIZUMAB
     Dosage: 300 UNK
     Route: 041
     Dates: start: 20210520, end: 20210909
  9. BEVACIZUMAB [Suspect]
     Active Substance: BEVACIZUMAB
     Dosage: 300 UNK
     Route: 041
     Dates: start: 20210924, end: 20210924
  10. BEVACIZUMAB [Suspect]
     Active Substance: BEVACIZUMAB
     Dosage: 300 UNK
     Route: 041
     Dates: start: 20211014
  11. BEVACIZUMAB [Suspect]
     Active Substance: BEVACIZUMAB
     Dosage: 300 UNK
     Route: 041
     Dates: start: 20211104
  12. CAPECITABINE [Suspect]
     Active Substance: CAPECITABINE
     Indication: Rectal cancer
     Dosage: 1500MG,1 TIMES IN
     Route: 048
     Dates: start: 20201005
  13. CAPECITABINE [Suspect]
     Active Substance: CAPECITABINE
     Dosage: 900MG,1 TIMES IN
     Route: 048
     Dates: start: 20201030
  14. CAPECITABINE [Suspect]
     Active Substance: CAPECITABINE
     Dosage: 900MG,1 TIMES IN
     Route: 048
     Dates: start: 20201120
  15. CAPECITABINE [Suspect]
     Active Substance: CAPECITABINE
     Dosage: 1500MG,1 TIMES IN
     Route: 048
     Dates: start: 20201210
  16. CAPECITABINE [Suspect]
     Active Substance: CAPECITABINE
     Dosage: UNK, QD
     Route: 048
     Dates: start: 20210104, end: 20210118
  17. CAPECITABINE [Suspect]
     Active Substance: CAPECITABINE
     Dosage: 1500MG,1 TIMES IN
     Route: 048
     Dates: start: 20210126
  18. IRINOTECAN HYDROCHLORIDE [Concomitant]
     Active Substance: IRINOTECAN HYDROCHLORIDE
     Indication: Rectal cancer
     Dosage: 350MG,ONCE IN1DAY
     Route: 041
     Dates: start: 20201005, end: 20201005
  19. IRINOTECAN HYDROCHLORIDE [Concomitant]
     Active Substance: IRINOTECAN HYDROCHLORIDE
     Dosage: 262MG,1 TIMES IN
     Route: 041
     Dates: start: 20201030, end: 20201120
  20. IRINOTECAN HYDROCHLORIDE [Concomitant]
     Active Substance: IRINOTECAN HYDROCHLORIDE
     Dosage: 350MG,ONCE IN1DAY
     Route: 041
     Dates: start: 20201210, end: 20201210
  21. IRINOTECAN HYDROCHLORIDE [Concomitant]
     Active Substance: IRINOTECAN HYDROCHLORIDE
     Dosage: UNK, QD
     Route: 041
     Dates: start: 20210104, end: 20210104
  22. IRINOTECAN HYDROCHLORIDE [Concomitant]
     Active Substance: IRINOTECAN HYDROCHLORIDE
     Dosage: 350MG,ONCE IN1DAY
     Route: 041
     Dates: start: 20210126, end: 20210126
  23. OXALIPLATIN [Concomitant]
     Active Substance: OXALIPLATIN
     Indication: Rectal cancer
     Dosage: 227MG,ONCE IN1DAY
     Route: 041
     Dates: start: 20201005, end: 20201005
  24. OXALIPLATIN [Concomitant]
     Active Substance: OXALIPLATIN
     Dosage: 175MG,1 TIMES IN
     Route: 041
     Dates: start: 20201030, end: 20201120
  25. OXALIPLATIN [Concomitant]
     Active Substance: OXALIPLATIN
     Dosage: 227MG,ONCE IN1DAY
     Route: 041
     Dates: start: 20201210, end: 20201210
  26. OXALIPLATIN [Concomitant]
     Active Substance: OXALIPLATIN
     Dosage: UNK
     Route: 041
     Dates: start: 20210104, end: 20210104
  27. OXALIPLATIN [Concomitant]
     Active Substance: OXALIPLATIN
     Dosage: 227MG,ONCE IN1DAY
     Route: 041
     Dates: start: 20210126, end: 20210126
  28. FLUOROURACIL [Concomitant]
     Active Substance: FLUOROURACIL
     Indication: Rectal cancer
     Dosage: UNK UNK, ONCE/2WEEKS
     Route: 040
     Dates: start: 20210225, end: 20210422
  29. FLUOROURACIL [Concomitant]
     Active Substance: FLUOROURACIL
     Dosage: 4000 MILLIGRAM
     Route: 041
     Dates: start: 20210225, end: 20210424
  30. FLUOROURACIL [Concomitant]
     Active Substance: FLUOROURACIL
     Dosage: UNK UNK, ONCE/2WEEKS
     Route: 040
     Dates: start: 20210506, end: 20210506
  31. FLUOROURACIL [Concomitant]
     Active Substance: FLUOROURACIL
     Dosage: 4000 MILLIGRAM
     Route: 041
     Dates: start: 20210506, end: 20210508
  32. FLUOROURACIL [Concomitant]
     Active Substance: FLUOROURACIL
     Dosage: UNK UNK, ONCE/2WEEKS
     Route: 040
     Dates: start: 20210520, end: 20210909
  33. FLUOROURACIL [Concomitant]
     Active Substance: FLUOROURACIL
     Dosage: 4000 MILLIGRAM
     Route: 041
     Dates: start: 20210520, end: 20210911
  34. FLUOROURACIL [Concomitant]
     Active Substance: FLUOROURACIL
     Dosage: UNK, QD
     Route: 040
     Dates: start: 20210924, end: 20210924
  35. FLUOROURACIL [Concomitant]
     Active Substance: FLUOROURACIL
     Dosage: 4000 MILLIGRAM
     Route: 041
     Dates: start: 20210924, end: 20210926
  36. FLUOROURACIL [Concomitant]
     Active Substance: FLUOROURACIL
     Dosage: UNK UNK, ONCE/2WEEKS
     Route: 040
     Dates: start: 20211014, end: 20211021
  37. FLUOROURACIL [Concomitant]
     Active Substance: FLUOROURACIL
     Dosage: 4000 MILLIGRAM
     Route: 041
     Dates: start: 20211014, end: 20211023
  38. FLUOROURACIL [Concomitant]
     Active Substance: FLUOROURACIL
     Dosage: UNK UNK, ONCE/2WEEKS
     Route: 040
     Dates: start: 20211104
  39. FLUOROURACIL [Concomitant]
     Active Substance: FLUOROURACIL
     Dosage: 4000 MILLIGRAM
     Route: 041
     Dates: start: 20211104
  40. LEVOLEUCOVORIN CALCIUM [Concomitant]
     Active Substance: LEVOLEUCOVORIN CALCIUM
     Indication: Rectal cancer
     Dosage: 330 MILLIGRAM
     Route: 041
     Dates: start: 20210225, end: 20210422
  41. LEVOLEUCOVORIN CALCIUM [Concomitant]
     Active Substance: LEVOLEUCOVORIN CALCIUM
     Dosage: 330 MILLIGRAM
     Route: 041
     Dates: start: 20210506, end: 20210506
  42. LEVOLEUCOVORIN CALCIUM [Concomitant]
     Active Substance: LEVOLEUCOVORIN CALCIUM
     Dosage: 330 MILLIGRAM
     Route: 041
     Dates: start: 20210520, end: 20210909
  43. LEVOLEUCOVORIN CALCIUM [Concomitant]
     Active Substance: LEVOLEUCOVORIN CALCIUM
     Dosage: UNK, QD
     Route: 041
     Dates: start: 20210924, end: 20210924
  44. LEVOLEUCOVORIN CALCIUM [Concomitant]
     Active Substance: LEVOLEUCOVORIN CALCIUM
     Dosage: 330 MILLIGRAM
     Route: 041
     Dates: start: 20211014, end: 20211021
  45. LEVOLEUCOVORIN CALCIUM [Concomitant]
     Active Substance: LEVOLEUCOVORIN CALCIUM
     Dosage: 330 MILLIGRAM
     Route: 041
     Dates: start: 20211104
  46. PALONOSETRON HYDROCHLORIDE [Concomitant]
     Active Substance: PALONOSETRON HYDROCHLORIDE
     Dosage: 0.75MG,ONCE IN1DAY
     Route: 042
     Dates: start: 20201005, end: 20201005
  47. PALONOSETRON HYDROCHLORIDE [Concomitant]
     Active Substance: PALONOSETRON HYDROCHLORIDE
     Dosage: 0.75MG,1 TIMES IN
     Route: 042
     Dates: start: 20201030, end: 20201210
  48. PALONOSETRON HYDROCHLORIDE [Concomitant]
     Active Substance: PALONOSETRON HYDROCHLORIDE
     Dosage: UNK, QD
     Route: 041
     Dates: start: 20210104, end: 20210104
  49. PALONOSETRON HYDROCHLORIDE [Concomitant]
     Active Substance: PALONOSETRON HYDROCHLORIDE
     Dosage: UNK, QD
     Route: 041
     Dates: start: 20210126, end: 20210126
  50. DEXAMETHASONE SODIUM PHOSPHATE [Concomitant]
     Active Substance: DEXAMETHASONE SODIUM PHOSPHATE
     Dosage: 9.9MG,ONCE IN1DAY
     Route: 042
     Dates: start: 20201005, end: 20201005
  51. DEXAMETHASONE SODIUM PHOSPHATE [Concomitant]
     Active Substance: DEXAMETHASONE SODIUM PHOSPHATE
     Dosage: 9.9MG,1 TIMES IN
     Route: 042
     Dates: start: 20201030, end: 20201210
  52. DEXAMETHASONE SODIUM PHOSPHATE [Concomitant]
     Active Substance: DEXAMETHASONE SODIUM PHOSPHATE
     Dosage: 9.9MG,1 TIMES IN
     Route: 042
     Dates: start: 20210104, end: 20210104
  53. DEXAMETHASONE SODIUM PHOSPHATE [Concomitant]
     Active Substance: DEXAMETHASONE SODIUM PHOSPHATE
     Dosage: 9.9MG,1 TIMES IN
     Route: 042
     Dates: start: 20210126, end: 20210126
  54. DEXAMETHASONE [Concomitant]
     Active Substance: DEXAMETHASONE
     Dosage: 8MG,1 TIMES IN
     Route: 048
     Dates: start: 20201006, end: 20201008
  55. DEXAMETHASONE [Concomitant]
     Active Substance: DEXAMETHASONE
     Dosage: 8MG,1 TIMES IN
     Route: 048
     Dates: start: 20201031, end: 20201213
  56. DEXAMETHASONE [Concomitant]
     Active Substance: DEXAMETHASONE
     Dosage: 8MG,1 TIMES IN
     Route: 048
     Dates: start: 20210105, end: 20210107
  57. DEXAMETHASONE [Concomitant]
     Active Substance: DEXAMETHASONE
     Dosage: 8MG,1 TIMES IN
     Route: 048
     Dates: start: 20210127, end: 20210129
  58. APREPITANT [Concomitant]
     Active Substance: APREPITANT
     Dosage: 125MG,ONCE IN1DAY
     Route: 048
     Dates: start: 20201005, end: 20201005
  59. APREPITANT [Concomitant]
     Active Substance: APREPITANT
     Dosage: 80MG,1 TIMES IN
     Route: 048
     Dates: start: 20201006, end: 20201007
  60. APREPITANT [Concomitant]
     Active Substance: APREPITANT
     Dosage: 125MG,1 TIMES IN
     Route: 048
     Dates: start: 20201030, end: 20201210
  61. APREPITANT [Concomitant]
     Active Substance: APREPITANT
     Dosage: 80MG,1 TIMES IN
     Route: 048
     Dates: start: 20201031, end: 20201212
  62. APREPITANT [Concomitant]
     Active Substance: APREPITANT
     Dosage: 125MG,1 TIMES IN
     Route: 048
     Dates: start: 20210104, end: 20210104
  63. APREPITANT [Concomitant]
     Active Substance: APREPITANT
     Dosage: 80MG,1 TIMES IN
     Route: 048
     Dates: start: 20210105, end: 20210106
  64. APREPITANT [Concomitant]
     Active Substance: APREPITANT
     Dosage: 125MG,1 TIMES IN
     Route: 048
     Dates: start: 20210126, end: 20210126
  65. APREPITANT [Concomitant]
     Active Substance: APREPITANT
     Dosage: 80MG,1 TIMES IN
     Route: 048
     Dates: start: 20210127, end: 20210128

REACTIONS (1)
  - Hypertension [Unknown]

NARRATIVE: CASE EVENT DATE: 20201030
